FAERS Safety Report 7817076-1 (Version None)
Quarter: 2011Q4

REPORT INFORMATION
  Report Type: 
  Country: None (occurrence: None)
  Receive Date: 20111017
  Receipt Date: 20111011
  Transmission Date: 20120403
  Serious: Yes (Hospitalization)
  Sender: FDA-Public Use
  Company Number: PHEH2011US06485

PATIENT
  Sex: Female

DRUGS (6)
  1. PULMOZYME [Concomitant]
  2. OMEPRAZOLE [Concomitant]
     Indication: GASTROOESOPHAGEAL REFLUX DISEASE
  3. MEROPENEM [Concomitant]
  4. ADVAIR DISKUS 100/50 [Concomitant]
  5. TOBI [Suspect]
     Indication: CYSTIC FIBROSIS
     Dosage: 300 MG, BID
  6. HYPERTONIC SOLUTIONS [Concomitant]

REACTIONS (4)
  - MALAISE [None]
  - RHINORRHOEA [None]
  - FORCED EXPIRATORY VOLUME ABNORMAL [None]
  - DECREASED APPETITE [None]
